FAERS Safety Report 11087547 (Version 1)
Quarter: 2015Q2

REPORT INFORMATION
  Report Type: Spontaneous
  Country: US (occurrence: None)
  Receive Date: 20150501
  Receipt Date: 20150501
  Transmission Date: 20150821
  Serious: Yes (Disabling)
  Sender: FDA-Public Use
  Company Number: None

PATIENT
  Age: 66 Year
  Sex: Female
  Weight: 90.72 kg

DRUGS (9)
  1. SIMVASTATIN. [Concomitant]
     Active Substance: SIMVASTATIN
  2. D [Concomitant]
  3. B1 [Concomitant]
  4. POTASSIUM [Concomitant]
     Active Substance: POTASSIUM
  5. MAGNESIUM [Concomitant]
     Active Substance: MAGNESIUM
  6. VITAMINS [Concomitant]
     Active Substance: VITAMINS
  7. B6 [Concomitant]
     Active Substance: PYRIDOXINE HYDROCHLORIDE
  8. LEVOTHYROXIN [Concomitant]
     Active Substance: LEVOTHYROXINE
  9. BONIVA [Suspect]
     Active Substance: IBANDRONATE SODIUM
     Indication: OSTEOPOROSIS
     Route: 048
     Dates: start: 20051221, end: 20060121

REACTIONS (10)
  - Dyspnoea [None]
  - Impaired work ability [None]
  - Hypoaesthesia [None]
  - Weight increased [None]
  - Decreased activity [None]
  - Peripheral swelling [None]
  - Tooth loss [None]
  - Gait disturbance [None]
  - Mobility decreased [None]
  - Vein disorder [None]

NARRATIVE: CASE EVENT DATE: 20051221
